FAERS Safety Report 18187966 (Version 1)
Quarter: 2020Q3

REPORT INFORMATION
  Report Type: Spontaneous
  Country: CN (occurrence: CN)
  Receive Date: 20200824
  Receipt Date: 20200824
  Transmission Date: 20201103
  Serious: Yes (Life-Threatening, Other)
  Sender: FDA-Public Use
  Company Number: CN-PFIZER INC-2020324561

PATIENT
  Age: 14 Year
  Sex: Female
  Weight: 76 kg

DRUGS (1)
  1. ANZATAX (PACLITAXEL) [Suspect]
     Active Substance: PACLITAXEL
     Indication: CHEMOTHERAPY
     Dosage: 270 MG, 1X/DAY
     Route: 041
     Dates: start: 20200813, end: 20200813

REACTIONS (13)
  - Off label use [Unknown]
  - Vomiting [Unknown]
  - Hyperhidrosis [Unknown]
  - Cold sweat [Unknown]
  - Product use issue [Unknown]
  - Shock [Recovering/Resolving]
  - Urinary incontinence [Unknown]
  - Headache [Unknown]
  - Muscle rigidity [Recovered/Resolved]
  - Unresponsive to stimuli [Unknown]
  - Hypoaesthesia oral [Unknown]
  - Tinnitus [Unknown]
  - Vision blurred [Unknown]

NARRATIVE: CASE EVENT DATE: 20200813
